FAERS Safety Report 5665541-8 (Version None)
Quarter: 2008Q1

REPORT INFORMATION
  Report Type: 
  Country: None (occurrence: None)
  Receive Date: 20080314
  Receipt Date: 20071212
  Transmission Date: 20080703
  Serious: No
  Sender: FDA-Public Use
  Company Number: US-ABBOTT-07P-163-0428820-00

PATIENT
  Sex: Female
  Weight: 67.646 kg

DRUGS (3)
  1. HUMIRA [Suspect]
     Indication: PSORIASIS
     Route: 058
     Dates: start: 20071001, end: 20071001
  2. HUMIRA [Suspect]
     Route: 058
     Dates: start: 20071110, end: 20071211
  3. HUMIRA [Suspect]
     Route: 058
     Dates: start: 20071212

REACTIONS (1)
  - DRUG INEFFECTIVE [None]
